FAERS Safety Report 4452689-9 (Version None)
Quarter: 2004Q3

REPORT INFORMATION
  Report Type: 
  Country: None (occurrence: None)
  Receive Date: 20040813
  Receipt Date: 20040702
  Transmission Date: 20050211
  Serious: No
  Sender: FDA-Public Use
  Company Number: S04-USA-03790-01

PATIENT
  Age: 90 Year
  Sex: Female

DRUGS (8)
  1. NAMENDA [Suspect]
     Indication: DEMENTIA ALZHEIMER'S TYPE
     Dosage: 5 MG QD PO
     Route: 048
     Dates: start: 20040627
  2. ARICEPT [Concomitant]
  3. RISPERDAL [Concomitant]
  4. PREMARIN [Concomitant]
  5. TOPROL-XL [Concomitant]
  6. FUROSEMIDE [Concomitant]
  7. ZOCOR [Concomitant]
  8. ZANTAC [Concomitant]

REACTIONS (4)
  - AGITATION [None]
  - FEELING HOT [None]
  - HYPERACUSIS [None]
  - RESTLESSNESS [None]
